FAERS Safety Report 6233152-1 (Version None)
Quarter: 2009Q2

REPORT INFORMATION
  Report Type: 
  Country: None (occurrence: None)
  Receive Date: 20090617
  Receipt Date: 20090605
  Transmission Date: 20091009
  Serious: Yes (Hospitalization, Disabling)
  Sender: FDA-Public Use
  Company Number: GB-JNJFOC-20090602354

PATIENT
  Age: 12 Year
  Sex: Female
  Weight: 52.35 kg

DRUGS (3)
  1. REMICADE [Suspect]
     Indication: UVEITIS
     Dosage: SIGNIFICANT DURATION
     Route: 042
  2. METHOTREXATE [Concomitant]
  3. PREDNISOLONE [Concomitant]

REACTIONS (2)
  - MYCOPLASMA INFECTION [None]
  - MYELITIS TRANSVERSE [None]
